FAERS Safety Report 6393093-6 (Version None)
Quarter: 2009Q4

REPORT INFORMATION
  Report Type: 
  Country: None (occurrence: None)
  Receive Date: 20091008
  Receipt Date: 20090928
  Transmission Date: 20100525
  Serious: Yes (Hospitalization)
  Sender: FDA-Public Use
  Company Number: US-ROCHE-642379

PATIENT
  Sex: Male

DRUGS (4)
  1. MYCOPHENOLATE MOFETIL [Suspect]
     Indication: LIVER TRANSPLANT
     Route: 048
     Dates: start: 20090509, end: 20090713
  2. TACROLIMUS [Suspect]
     Indication: LIVER TRANSPLANT
     Route: 048
     Dates: start: 20090509, end: 20090713
  3. VALGANCICLOVIR HCL [Concomitant]
     Dosage: DRUG NAME: VALGANCICLOVIR HCL
     Dates: start: 20090513
  4. VENLAFAXINE HCL [Concomitant]
     Dates: start: 20090509

REACTIONS (4)
  - BILIARY ABSCESS [None]
  - HEPATIC ARTERY THROMBOSIS [None]
  - PYREXIA [None]
  - TRANSPLANT [None]
